FAERS Safety Report 23513318 (Version 1)
Quarter: 2024Q1

REPORT INFORMATION
  Report Type: Spontaneous
  Country: US (occurrence: None)
  Receive Date: 20240210
  Receipt Date: 20240210
  Transmission Date: 20240410
  Serious: No
  Sender: FDA-Public Use
  Company Number: None

PATIENT
  Age: 70 Year
  Sex: Female
  Weight: 108 kg

DRUGS (5)
  1. METHYLPREDNISOLONE [Suspect]
     Active Substance: METHYLPREDNISOLONE
     Indication: Arthritis
     Dosage: OTHER QUANTITY : 1 TABLET(S);?OTHER FREQUENCY : 21 TABS OVER 6 DAY;?
     Route: 048
     Dates: start: 20240209, end: 20240209
  2. ELIQUIS [Concomitant]
     Active Substance: APIXABAN
  3. METOPROLOL TARTRATE [Concomitant]
  4. CALCIUM [Concomitant]
     Active Substance: CALCIUM
  5. VITAMIN D NOS [Concomitant]
     Active Substance: VITAMIN D NOS

REACTIONS (4)
  - Hot flush [None]
  - Pruritus [None]
  - Urticaria [None]
  - Therapy interrupted [None]

NARRATIVE: CASE EVENT DATE: 20240209
